FAERS Safety Report 6570988-1 (Version None)
Quarter: 2010Q1

REPORT INFORMATION
  Report Type: 
  Country: None (occurrence: None)
  Receive Date: 20100204
  Receipt Date: 20100127
  Transmission Date: 20100710
  Serious: Yes (Hospitalization)
  Sender: FDA-Public Use
  Company Number: PHHO2010DE01601

PATIENT
  Sex: Male
  Weight: 60 kg

DRUGS (3)
  1. CERTICAN [Suspect]
     Indication: LIVER TRANSPLANT
     Dosage: 1 MG, BID
     Route: 048
     Dates: start: 20091026, end: 20091201
  2. TACROLIMUS [Suspect]
     Indication: LIVER TRANSPLANT
     Dosage: 1 MG, BID
     Route: 048
     Dates: start: 20091026, end: 20091201
  3. PREDNISONE [Concomitant]
     Indication: IMMUNOSUPPRESSION
     Dosage: 5 MG, QD
     Route: 048
     Dates: start: 20090901

REACTIONS (5)
  - ASCITES [None]
  - CANDIDIASIS [None]
  - HYPERGLYCAEMIA [None]
  - PNEUMOCYSTIS JIROVECI PNEUMONIA [None]
  - SEPSIS [None]
